FAERS Safety Report 8820152 (Version 3)
Quarter: 2013Q1

REPORT INFORMATION
  Report Type: Spontaneous
  Country: TW (occurrence: TW)
  Receive Date: 20121001
  Receipt Date: 20130304
  Transmission Date: 20140127
  Serious: Yes (Hospitalization)
  Sender: FDA-Public Use
  Company Number: TW-ABBOTT-12P-153-0986406-00

PATIENT
  Age: 73 Year
  Sex: Female
  Weight: 50 kg

DRUGS (21)
  1. HUMIRA [Suspect]
     Indication: PRODUCT USED FOR UNKNOWN INDICATION
     Route: 058
     Dates: start: 20100304, end: 20120830
  2. NORMACOL PLUS [Concomitant]
     Indication: PRODUCT USED FOR UNKNOWN INDICATION
     Route: 048
     Dates: start: 20120823
  3. NORMACOL PLUS [Concomitant]
     Route: 048
     Dates: start: 20120911, end: 20120925
  4. PLAQUENIL [Concomitant]
     Indication: PRODUCT USED FOR UNKNOWN INDICATION
     Route: 048
     Dates: start: 20120823
  5. LANDORMIN [Concomitant]
     Indication: PRODUCT USED FOR UNKNOWN INDICATION
     Route: 048
     Dates: start: 20120823
  6. PREDNISOLONE [Concomitant]
     Indication: PRODUCT USED FOR UNKNOWN INDICATION
     Dosage: 5MG VPP 0.50 TAB PO 28QD
     Route: 048
     Dates: start: 20120823
  7. FAMO [Concomitant]
     Indication: PRODUCT USED FOR UNKNOWN INDICATION
     Dosage: 20MG QD AND QHS
     Route: 048
     Dates: start: 20120911, end: 20120925
  8. DEPYRETIN [Concomitant]
     Indication: PRODUCT USED FOR UNKNOWN INDICATION
     Dosage: Q6HPRN
     Route: 048
     Dates: start: 20120911, end: 20120925
  9. ACTEIN [Concomitant]
     Indication: PRODUCT USED FOR UNKNOWN INDICATION
     Dosage: 66.7 MG/G.3G/WP
     Route: 048
     Dates: start: 20120911, end: 20120925
  10. SOONMELT [Concomitant]
     Indication: PRODUCT USED FOR UNKNOWN INDICATION
     Route: 042
     Dates: start: 20120911, end: 20120925
  11. AGGRENOX MR [Concomitant]
     Indication: PRODUCT USED FOR UNKNOWN INDICATION
     Route: 048
     Dates: start: 20120912
  12. NOOPOL [Concomitant]
     Indication: PRODUCT USED FOR UNKNOWN INDICATION
     Route: 048
     Dates: start: 20120912
  13. SALINE [Concomitant]
     Indication: PRODUCT USED FOR UNKNOWN INDICATION
     Route: 041
     Dates: start: 20120914
  14. DIPHENIDOL [Concomitant]
     Indication: PRODUCT USED FOR UNKNOWN INDICATION
     Route: 048
     Dates: start: 20120919
  15. MIDORINE [Concomitant]
     Indication: PRODUCT USED FOR UNKNOWN INDICATION
     Route: 048
     Dates: start: 20120910
  16. ARTELAC [Concomitant]
     Indication: PRODUCT USED FOR UNKNOWN INDICATION
     Dosage: 0.32% 10ML TID
     Route: 047
     Dates: start: 20120920
  17. ULTRACET [Concomitant]
     Indication: PRODUCT USED FOR UNKNOWN INDICATION
     Dosage: 1 TAB QD AND QHS
     Route: 048
     Dates: start: 20120920
  18. SODIUM CHLORIDE [Concomitant]
     Indication: PRODUCT USED FOR UNKNOWN INDICATION
     Route: 055
     Dates: start: 20120921
  19. GASCON [Concomitant]
     Indication: PRODUCT USED FOR UNKNOWN INDICATION
     Route: 048
  20. PROTASE [Concomitant]
     Indication: PRODUCT USED FOR UNKNOWN INDICATION
     Dosage: 1 TAB BIDCCPO
  21. ZOLOFT [Concomitant]
     Indication: DEPRESSION

REACTIONS (47)
  - Subgaleal haematoma [Unknown]
  - Pneumonia [Recovering/Resolving]
  - Head injury [Recovering/Resolving]
  - Fall [Recovering/Resolving]
  - Disorientation [Unknown]
  - Gait disturbance [Unknown]
  - Dysarthria [Unknown]
  - Asthenia [Unknown]
  - Blood creatine phosphokinase increased [Unknown]
  - Blood creatine phosphokinase abnormal [Unknown]
  - Troponin [Unknown]
  - Urinary tract infection [Unknown]
  - Cerebral atrophy [Unknown]
  - Cerebral disorder [Unknown]
  - Lacunar infarction [Unknown]
  - Cerebral disorder [Unknown]
  - Basal ganglion degeneration [Unknown]
  - Arteriosclerosis [Unknown]
  - Carotid arteriosclerosis [Unknown]
  - C-reactive protein increased [Unknown]
  - Cerebrovascular accident [Unknown]
  - Hypokalaemia [Unknown]
  - Dyspnoea exertional [Unknown]
  - Vulvar erosion [Unknown]
  - Vulval ulceration [Unknown]
  - Cushingoid [Unknown]
  - Hypoaesthesia [Unknown]
  - Arthralgia [Unknown]
  - Pain in extremity [Unknown]
  - Nail disorder [Unknown]
  - Onychalgia [Unknown]
  - Abdominal distension [Unknown]
  - Dyspepsia [Unknown]
  - Finger deformity [Unknown]
  - Telangiectasia [Unknown]
  - Pain in extremity [Unknown]
  - Nausea [Unknown]
  - Vomiting [Unknown]
  - Hepatic enzyme abnormal [Unknown]
  - Dizziness [Unknown]
  - Alopecia [Unknown]
  - Injection site pruritus [Unknown]
  - Pyrexia [Unknown]
  - Cough [Unknown]
  - Rhinorrhoea [Unknown]
  - Decreased appetite [Unknown]
  - Orthostatic hypotension [Unknown]
